FAERS Safety Report 12612276 (Version 2)
Quarter: 2016Q3

REPORT INFORMATION
  Report Type: Spontaneous
  Country: US (occurrence: US)
  Receive Date: 20160801
  Receipt Date: 20160902
  Transmission Date: 20161109
  Serious: Yes (Hospitalization)
  Sender: FDA-Public Use
  Company Number: US-PFIZER INC-3006053

PATIENT
  Age: 17 Year
  Sex: Male
  Weight: 63.5 kg

DRUGS (15)
  1. METHOTREXATE SODIUM. [Suspect]
     Active Substance: METHOTREXATE SODIUM
     Indication: ANAPLASTIC LARGE CELL LYMPHOMA T- AND NULL-CELL TYPES
     Dosage: 3000 MG/M2, 5220 MG;OVER 3 HOURS ON DAY 1, FREQ: CYCLICAL
     Route: 042
     Dates: start: 20140804, end: 20140805
  2. DOXORUBICIN HYDROCHLORIDE. [Suspect]
     Active Substance: DOXORUBICIN HYDROCHLORIDE
     Dosage: 44 MG, 44 MG;OVER 1-15 MIN ON DAYS 4 AND 5, FREQ: CYCLICAL
     Route: 042
     Dates: start: 20140922, end: 20140923
  3. CYCLOPHOSPHAMIDE. [Suspect]
     Active Substance: CYCLOPHOSPHAMIDE
     Indication: ANAPLASTIC LARGE CELL LYMPHOMA T- AND NULL-CELL TYPES
     Dosage: UNK
     Dates: start: 20141103, end: 20141107
  4. DEXAMETHASONE. [Suspect]
     Active Substance: DEXAMETHASONE
     Dosage: 9 MG, ON DAYS 1-5, FREQ: 2 DAY; INTERVAL: 1
     Route: 048
     Dates: start: 20140919, end: 20140923
  5. DOXORUBICIN HYDROCHLORIDE. [Suspect]
     Active Substance: DOXORUBICIN HYDROCHLORIDE
     Indication: ANAPLASTIC LARGE CELL LYMPHOMA T- AND NULL-CELL TYPES
     Dosage: UNK
     Dates: start: 20141106, end: 20141107
  6. METHOTREXATE SODIUM. [Suspect]
     Active Substance: METHOTREXATE SODIUM
     Dosage: 5280 MG, OVER 3 HOURS ON DAY 1, FREQ: CYCLICAL
     Route: 042
     Dates: start: 20140919
  7. CYCLOPHOSPHAMIDE. [Suspect]
     Active Substance: CYCLOPHOSPHAMIDE
     Dosage: 200 MG/M2, 348 MG;OVER 15-30 MINUTES ON DAYS 1 AND 5, FREQ: CYCLICAL
     Route: 042
     Dates: start: 20140805, end: 20140809
  8. DEXAMETHASONE. [Suspect]
     Active Substance: DEXAMETHASONE
     Dosage: 8.75 MG, ON DAYS 1-5, FREQ: 2 DAY; INTERVAL: 1
     Route: 048
     Dates: start: 20141013, end: 20141017
  9. METHOTREXATE SODIUM. [Suspect]
     Active Substance: METHOTREXATE SODIUM
     Dosage: 5220 MG, OVER 3 HOURS ON DAY 1, FREQ: CYCLICAL
     Route: 042
     Dates: start: 20140830
  10. EMEND [Suspect]
     Active Substance: APREPITANT
     Indication: PRODUCT USED FOR UNKNOWN INDICATION
     Dosage: UNK
  11. CYCLOPHOSPHAMIDE. [Suspect]
     Active Substance: CYCLOPHOSPHAMIDE
     Dosage: 352 MG, OVER 15-30 MINUTES ON DAYS 1 AND 5, FREQ: CYCLICAL
     Route: 042
     Dates: start: 20140919, end: 20140923
  12. METHOTREXATE SODIUM. [Suspect]
     Active Substance: METHOTREXATE SODIUM
     Dosage: 5160 MG, OVER 3 HOURS ON DAY 1, FREQ: CYCLICAL
     Route: 042
     Dates: start: 20141013
  13. CRIZOTINIB [Suspect]
     Active Substance: CRIZOTINIB
     Indication: ANAPLASTIC LARGE CELL LYMPHOMA T- AND NULL-CELL TYPES
     Dosage: 165 MG/M2, ON DAYS 1-21, FREQ: 2 DAY; INTERVAL: 1
     Route: 048
     Dates: start: 20140804, end: 20140816
  14. DOXORUBICIN HYDROCHLORIDE. [Suspect]
     Active Substance: DOXORUBICIN HYDROCHLORIDE
     Dosage: 25 MG/M2, 44 MG;OVER 1-15 MIN ON DAYS 4 AND 5, FREQ: CYCLICAL
     Route: 042
     Dates: start: 20140808, end: 20140809
  15. DEXAMETHASONE. [Suspect]
     Active Substance: DEXAMETHASONE
     Indication: ANAPLASTIC LARGE CELL LYMPHOMA T- AND NULL-CELL TYPES
     Dosage: 8.75 MG, ON DAYS 1-5, FREQ: 2 DAY; INTERVAL: 1
     Route: 048
     Dates: start: 20140804, end: 20140808

REACTIONS (1)
  - Stomatitis [Recovered/Resolved]

NARRATIVE: CASE EVENT DATE: 20140817
